FAERS Safety Report 7336599-5 (Version None)
Quarter: 2011Q1

REPORT INFORMATION
  Report Type: 
  Country: None (occurrence: None)
  Receive Date: 20110307
  Receipt Date: 20110222
  Transmission Date: 20110831
  Serious: Yes (Other)
  Sender: FDA-Public Use
  Company Number: FR-BAYER-2011-017448

PATIENT
  Age: 85 Year
  Sex: Male
  Weight: 45 kg

DRUGS (1)
  1. CIFLOX [Suspect]
     Dosage: 500 MG, QD

REACTIONS (4)
  - DISORIENTATION [None]
  - MEMORY IMPAIRMENT [None]
  - COGNITIVE DISORDER [None]
  - RENAL FAILURE ACUTE [None]
